FAERS Safety Report 25661006 (Version 1)
Quarter: 2025Q3

REPORT INFORMATION
  Report Type: Report from Study
  Country: ZA (occurrence: ZA)
  Receive Date: 20250808
  Receipt Date: 20250808
  Transmission Date: 20251021
  Serious: Yes (Other)
  Sender: ALEXION PHARMACEUTICALS
  Company Number: ZA-AstraZeneca-CH-00727627A

PATIENT
  Age: 66 Year
  Sex: Female

DRUGS (6)
  1. BUDESONIDE\FORMOTEROL [Suspect]
     Active Substance: BUDESONIDE\FORMOTEROL
  2. LOSARTAN POTASSIUM [Concomitant]
     Active Substance: LOSARTAN POTASSIUM
  3. CALCIUM\MENAQUINONE 6\VITAMIN D [Concomitant]
     Active Substance: CALCIUM\MENAQUINONE 6\VITAMIN D
  4. SIMVASTATIN [Concomitant]
     Active Substance: SIMVASTATIN
  5. LETROZOLE [Concomitant]
     Active Substance: LETROZOLE
  6. ACETYLCYSTEINE [Concomitant]
     Active Substance: ACETYLCYSTEINE

REACTIONS (1)
  - Heart valve incompetence [Unknown]
